FAERS Safety Report 12667464 (Version 1)
Quarter: 2016Q3

REPORT INFORMATION
  Report Type: Spontaneous
  Country: US (occurrence: US)
  Receive Date: 20160819
  Receipt Date: 20160819
  Transmission Date: 20161109
  Serious: No
  Sender: FDA-Public Use
  Company Number: US-PFIZER INC-2016390750

PATIENT
  Age: 72 Year
  Sex: Female
  Weight: 104.33 kg

DRUGS (4)
  1. AROMASIN [Suspect]
     Active Substance: EXEMESTANE
     Indication: BREAST CANCER
     Dosage: 25MG TABLET BY MOUTH ONCE A DAY
     Route: 048
     Dates: start: 201606, end: 201607
  2. METFORMIN [Concomitant]
     Active Substance: METFORMIN HYDROCHLORIDE
     Indication: BLOOD GLUCOSE INCREASED
     Dosage: 500 MG, 1X/DAY
     Route: 048
  3. PRAVASTATIN. [Concomitant]
     Active Substance: PRAVASTATIN
     Indication: BLOOD CHOLESTEROL ABNORMAL
     Dosage: 20MG TABLET BY MOUTH ONCE EVERY OTHER DAY
     Route: 048
  4. LISINOPRIL. [Concomitant]
     Active Substance: LISINOPRIL
     Indication: BLOOD PRESSURE ABNORMAL
     Dosage: 10MG TABLET BY MOUTH ONCE A DAY

REACTIONS (6)
  - Dizziness [Recovered/Resolved]
  - Arthralgia [Recovering/Resolving]
  - Depression [Recovering/Resolving]
  - Myalgia [Recovering/Resolving]
  - Gait disturbance [Recovered/Resolved]
  - Activities of daily living impaired [Recovered/Resolved]

NARRATIVE: CASE EVENT DATE: 201606
